FAERS Safety Report 8567529-6 (Version None)
Quarter: 2012Q3

REPORT INFORMATION
  Report Type: 
  Country: None (occurrence: None)
  Receive Date: 20120803
  Receipt Date: 20120803
  Transmission Date: 20120928
  Serious: Yes (Death, Hospitalization)
  Sender: FDA-Public Use
  Company Number: PHHY2011AU106007

PATIENT
  Sex: Female

DRUGS (2)
  1. ATENOLOL [Concomitant]
     Indication: ARRHYTHMIA
     Dosage: 50 MG, MANE (IN THE MORNING)
  2. ZOLEDRONOC ACID [Suspect]
     Indication: OSTEOPOROSIS
     Dosage: 5 MG, UNK
     Route: 042
     Dates: start: 20100511

REACTIONS (5)
  - CONSTIPATION [None]
  - INTESTINAL OBSTRUCTION [None]
  - COLON CANCER [None]
  - VOMITING [None]
  - DEHYDRATION [None]
